FAERS Safety Report 18771858 (Version 1)
Quarter: 2021Q1

REPORT INFORMATION
  Report Type: Spontaneous
  Country: US (occurrence: US)
  Receive Date: 20210122
  Receipt Date: 20210122
  Transmission Date: 20210419
  Serious: No
  Sender: FDA-Public Use
  Company Number: US-PCCINC-2020-PEL-000501

PATIENT

DRUGS (3)
  1. GABLOFEN [Suspect]
     Active Substance: BACLOFEN
     Indication: MUSCLE SPASTICITY
     Dosage: 143 MICROGRAM PER DAY
     Route: 037
  2. GABLOFEN [Suspect]
     Active Substance: BACLOFEN
     Dosage: BOLUS
     Route: 037
     Dates: start: 20200204
  3. GABLOFEN [Suspect]
     Active Substance: BACLOFEN
     Dosage: 96 MICROGRAM PER DAY
     Route: 037

REACTIONS (2)
  - Device occlusion [Recovered/Resolved]
  - Hypertonia [Recovered/Resolved]

NARRATIVE: CASE EVENT DATE: 20200723
